FAERS Safety Report 4864882-1 (Version None)
Quarter: 2005Q4

REPORT INFORMATION
  Report Type: 
  Country: None (occurrence: None)
  Receive Date: 20051201
  Receipt Date: 20050811
  Transmission Date: 20060501
  Serious: No
  Sender: FDA-Public Use
  Company Number: 2005PV001105

PATIENT
  Sex: Female

DRUGS (4)
  1. BYETTA [Suspect]
     Indication: DIABETES MELLITUS
     Dosage: 5 MCG; BID; SC
     Route: 058
     Dates: start: 20050701
  2. HUMALOG MIX 75/25 [Concomitant]
  3. ACTOS [Concomitant]
  4. METFORMIN HCL [Concomitant]

REACTIONS (1)
  - HYPERGLYCAEMIA [None]
